FAERS Safety Report 9297919 (Version 1)
Quarter: 2013Q2

REPORT INFORMATION
  Report Type: Report from Study
  Country: AU (occurrence: AU)
  Receive Date: 20130520
  Receipt Date: 20130520
  Transmission Date: 20140414
  Serious: Yes (Other)
  Sender: FDA-Public Use
  Company Number: PHHY2011AU116184

PATIENT
  Age: 67 Year
  Sex: Female

DRUGS (7)
  1. ACLASTA [Suspect]
     Dosage: 5 MG, UNK
     Route: 042
     Dates: start: 20100423
  2. ACLASTA [Suspect]
     Dosage: 5 MG, UNK
     Route: 042
     Dates: start: 20110511
  3. ACLASTA [Suspect]
     Dosage: 5 MG, UNK
     Route: 042
     Dates: start: 20120508
  4. ASTRIX [Concomitant]
     Dosage: UNK, DAILY
     Route: 048
  5. ATACAND [Concomitant]
     Dosage: UNK, DAILY
     Route: 048
  6. PANETS [Concomitant]
     Dosage: UNK, DAILY
     Route: 048
  7. CRESTOR [Concomitant]
     Dosage: UNK, DAILY
     Route: 048

REACTIONS (2)
  - Asthma [Unknown]
  - Malaise [Recovered/Resolved]
